FAERS Safety Report 9213261 (Version 1)
Quarter: 2013Q2

REPORT INFORMATION
  Report Type: Spontaneous
  Country: US (occurrence: US)
  Receive Date: 20130405
  Receipt Date: 20130405
  Transmission Date: 20140414
  Serious: Yes (Other)
  Sender: FDA-Public Use
  Company Number: US-BAYER-2013-039732

PATIENT
  Age: 38 Year
  Sex: Female

DRUGS (1)
  1. MIRENA [Suspect]
     Dosage: UNK
     Dates: start: 20130314, end: 20130321

REACTIONS (3)
  - Device dislocation [Recovered/Resolved]
  - Complication of device insertion [Recovered/Resolved]
  - Abdominal pain lower [None]
